FAERS Safety Report 5232833-6 (Version None)
Quarter: 2007Q1

REPORT INFORMATION
  Report Type: 
  Country: None (occurrence: None)
  Receive Date: 20070206
  Receipt Date: 20070206
  Transmission Date: 20070707
  Serious: Yes (Death)
  Sender: FDA-Public Use
  Company Number: None

PATIENT
  Age: 76 Year
  Sex: Male

DRUGS (10)
  1. THALOMID [Suspect]
     Indication: ADRENAL CARCINOMA
     Dosage: 100MG  QHS PO
     Route: 048
     Dates: start: 20061224, end: 20070124
  2. XELODA [Suspect]
     Indication: ADRENAL CARCINOMA
     Dosage: 2000MG  3WKS ON 1 WK OFF PO
     Route: 048
     Dates: start: 20070104, end: 20070124
  3. ARIXTRA [Concomitant]
  4. CLARINEX [Concomitant]
  5. FLOMAX [Concomitant]
  6. NADOLOL [Concomitant]
  7. NORVASC [Concomitant]
  8. PROTON PUMP INDICATOR [Concomitant]
  9. ZOFRAN [Concomitant]
  10. TEMADOR [Concomitant]

REACTIONS (6)
  - ASTHENIA [None]
  - BLOOD PRESSURE DECREASED [None]
  - DEHYDRATION [None]
  - DIARRHOEA [None]
  - NO THERAPEUTIC RESPONSE [None]
  - ORAL INTAKE REDUCED [None]
